FAERS Safety Report 5409016-X (Version None)
Quarter: 2007Q3

REPORT INFORMATION
  Report Type: 
  Country: None (occurrence: None)
  Receive Date: 20070808
  Receipt Date: 20070731
  Transmission Date: 20080115
  Serious: Yes (Hospitalization)
  Sender: FDA-Public Use
  Company Number: CZ-SHR-CZ-2007-027046

PATIENT

DRUGS (1)
  1. BETAFERON (SH Y 579E) [Suspect]
     Dosage: 250 A?G, EVERY 2D
     Route: 058

REACTIONS (2)
  - DRUG HYPERSENSITIVITY [None]
  - PHARYNGITIS [None]
